FAERS Safety Report 16589899 (Version 2)
Quarter: 2019Q3

REPORT INFORMATION
  Report Type: Spontaneous
  Country: US (occurrence: US)
  Receive Date: 20190718
  Receipt Date: 20190722
  Transmission Date: 20191004
  Serious: Yes (Death, Other)
  Sender: FDA-Public Use
  Company Number: US-ASTRAZENECA-2018SF00796

PATIENT
  Age: 25852 Day
  Sex: Female
  Weight: 105.2 kg

DRUGS (5)
  1. PRILOSEC OTC [Suspect]
     Active Substance: OMEPRAZOLE MAGNESIUM
     Indication: GASTROOESOPHAGEAL REFLUX DISEASE
     Route: 048
     Dates: start: 2003, end: 2006
  2. LASIX [Concomitant]
     Active Substance: FUROSEMIDE
  3. CLONIDINE. [Concomitant]
     Active Substance: CLONIDINE
  4. ATENOLOL. [Concomitant]
     Active Substance: ATENOLOL
  5. LIPITOR [Concomitant]
     Active Substance: ATORVASTATIN CALCIUM

REACTIONS (7)
  - End stage renal disease [Unknown]
  - Tubulointerstitial nephritis [Unknown]
  - Death [Fatal]
  - Clostridium difficile infection [Unknown]
  - Hyperparathyroidism secondary [Unknown]
  - Chronic kidney disease [Unknown]
  - Renal failure [Unknown]

NARRATIVE: CASE EVENT DATE: 20040204
